FAERS Safety Report 17302076 (Version 1)
Quarter: 2020Q1

REPORT INFORMATION
  Report Type: Spontaneous
  Country: US (occurrence: US)
  Receive Date: 20200122
  Receipt Date: 20200122
  Transmission Date: 20200409
  Serious: No
  Sender: FDA-Public Use
  Company Number: US-ABBVIE-20K-163-3229488-00

PATIENT
  Sex: Female

DRUGS (1)
  1. ORILISSA [Suspect]
     Active Substance: ELAGOLIX SODIUM
     Indication: ENDOMETRIOSIS
     Route: 048
     Dates: start: 2019, end: 2019

REACTIONS (7)
  - Panic attack [Unknown]
  - Asthma [Unknown]
  - Anxiety [Unknown]
  - Fear [Unknown]
  - Thinking abnormal [Unknown]
  - Emotional distress [Unknown]
  - Grief reaction [Unknown]
